FAERS Safety Report 10219630 (Version 1)
Quarter: 2014Q2

REPORT INFORMATION
  Report Type: Spontaneous
  Country: US (occurrence: None)
  Receive Date: 20140604
  Receipt Date: 20140604
  Transmission Date: 20141212
  Serious: Yes (Other)
  Sender: FDA-Public Use
  Company Number: None

PATIENT
  Age: 74 Year
  Sex: Male
  Weight: 77.11 kg

DRUGS (2)
  1. XARELTO [Suspect]
     Indication: ANTICOAGULANT THERAPY
     Dates: start: 20140101, end: 20140415
  2. AMIODARONE [Suspect]
     Indication: CARDIAC DISORDER
     Dates: start: 20140131, end: 20140520

REACTIONS (4)
  - Skin irritation [None]
  - Skin exfoliation [None]
  - Skin discolouration [None]
  - Erythema [None]
